FAERS Safety Report 7625932-2 (Version None)
Quarter: 2011Q3

REPORT INFORMATION
  Report Type: 
  Country: None (occurrence: None)
  Receive Date: 20110721
  Receipt Date: 20110721
  Transmission Date: 20111222
  Serious: No
  Sender: FDA-Public Use
  Company Number: None

PATIENT
  Age: 6 Year
  Sex: Male
  Weight: 18.143 kg

DRUGS (1)
  1. ATROPINE [Suspect]
     Indication: RETINOBLASTOMA UNILATERAL
     Dosage: 1 DROP
     Route: 031
     Dates: start: 20110716, end: 20110716

REACTIONS (1)
  - DRUG EFFECT PROLONGED [None]
